FAERS Safety Report 4380139-X (Version None)
Quarter: 2004Q2

REPORT INFORMATION
  Report Type: 
  Country: None (occurrence: None)
  Receive Date: 20040614
  Receipt Date: 20040325
  Transmission Date: 20050107
  Serious: No
  Sender: FDA-Public Use
  Company Number: M04-341-091

PATIENT
  Age: 77 Year
  Sex: Male
  Weight: 92 kg

DRUGS (4)
  1. VELCADE [Suspect]
     Indication: MULTIPLE MYELOMA
     Dosage: 2.8 MG: INTRAVENOUS
     Route: 042
     Dates: start: 20030101
  2. DEXAMETHASONE [Concomitant]
  3. LANSOPRAZOLE [Concomitant]
  4. LOVASTATIN [Concomitant]

REACTIONS (2)
  - NEUROPATHY [None]
  - WEIGHT DECREASED [None]
